FAERS Safety Report 18123624 (Version 2)
Quarter: 2022Q1

REPORT INFORMATION
  Report Type: Spontaneous
  Country: US (occurrence: None)
  Receive Date: 20200807
  Receipt Date: 20220221
  Transmission Date: 20220423
  Serious: Yes (Hospitalization, Other)
  Sender: FDA-Public Use
  Company Number: 2020SE95710

PATIENT
  Age: 15395 Day
  Sex: Male
  Weight: 115.2 kg

DRUGS (72)
  1. FARXIGA [Suspect]
     Active Substance: DAPAGLIFLOZIN PROPANEDIOL
     Indication: Type 2 diabetes mellitus
     Route: 048
     Dates: start: 20171212
  2. FARXIGA [Suspect]
     Active Substance: DAPAGLIFLOZIN PROPANEDIOL
     Indication: Weight decreased
     Route: 048
     Dates: start: 20171212
  3. FARXIGA [Suspect]
     Active Substance: DAPAGLIFLOZIN PROPANEDIOL
     Indication: Hypotension
     Route: 048
     Dates: start: 20171212
  4. FARXIGA [Suspect]
     Active Substance: DAPAGLIFLOZIN PROPANEDIOL
     Indication: Type 2 diabetes mellitus
     Dosage: GENERIC
     Route: 048
     Dates: start: 20180320
  5. FARXIGA [Suspect]
     Active Substance: DAPAGLIFLOZIN PROPANEDIOL
     Indication: Weight decreased
     Dosage: GENERIC
     Route: 048
     Dates: start: 20180320
  6. FARXIGA [Suspect]
     Active Substance: DAPAGLIFLOZIN PROPANEDIOL
     Indication: Hypotension
     Dosage: GENERIC
     Route: 048
     Dates: start: 20180320
  7. FARXIGA [Suspect]
     Active Substance: DAPAGLIFLOZIN PROPANEDIOL
     Indication: Type 2 diabetes mellitus
     Route: 048
     Dates: start: 20170918, end: 20181218
  8. FARXIGA [Suspect]
     Active Substance: DAPAGLIFLOZIN PROPANEDIOL
     Indication: Weight decreased
     Route: 048
     Dates: start: 20170918, end: 20181218
  9. FARXIGA [Suspect]
     Active Substance: DAPAGLIFLOZIN PROPANEDIOL
     Indication: Hypotension
     Route: 048
     Dates: start: 20170918, end: 20181218
  10. LISINOPRIL [Concomitant]
     Active Substance: LISINOPRIL
     Dates: start: 20131104
  11. LIPITOR [Concomitant]
     Active Substance: ATORVASTATIN CALCIUM
  12. COREG [Concomitant]
     Active Substance: CARVEDILOL
  13. JANUVIA [Concomitant]
     Active Substance: SITAGLIPTIN PHOSPHATE
     Dates: start: 20200928
  14. CINNAMON [Concomitant]
     Active Substance: CINNAMON
  15. VITAMIN B [Concomitant]
     Active Substance: VITAMIN B
  16. FOLVITE [Concomitant]
     Active Substance: FOLIC ACID
     Dates: start: 20201005
  17. PLAVIX [Concomitant]
     Active Substance: CLOPIDOGREL BISULFATE
  18. PACERONE [Concomitant]
     Active Substance: AMIODARONE HYDROCHLORIDE
     Dates: start: 20201005
  19. ELIQUIS [Concomitant]
     Active Substance: APIXABAN
  20. BUMEX [Concomitant]
     Active Substance: BUMETANIDE
     Dates: start: 20201024
  21. NITROGLYCERIN [Concomitant]
     Active Substance: NITROGLYCERIN
  22. CLEOCIN [Concomitant]
     Active Substance: CLINDAMYCIN PHOSPHATE
  23. TYLENOL [Concomitant]
     Active Substance: ACETAMINOPHEN
  24. HYDROCODONE [Concomitant]
     Active Substance: HYDROCODONE
  25. ASPIRIN [Concomitant]
     Active Substance: ASPIRIN
  26. MYLANTA [Concomitant]
     Active Substance: ALUMINUM HYDROXIDE\DIMETHICONE\MAGNESIUM HYDROXIDE
  27. CLONIDINE [Concomitant]
     Active Substance: CLONIDINE
     Dates: start: 20201005
  28. CARDIZEM [Concomitant]
     Active Substance: DILTIAZEM HYDROCHLORIDE
  29. GLUCAGON [Concomitant]
     Active Substance: GLUCAGON
  30. DEXTROSE [Concomitant]
     Active Substance: DEXTROSE
  31. LIDOCAINE [Concomitant]
     Active Substance: LIDOCAINE
  32. FENTANYL [Concomitant]
     Active Substance: FENTANYL
  33. MIDAZOLAM [Concomitant]
     Active Substance: MIDAZOLAM
  34. SODIUM BICARBONATE [Concomitant]
     Active Substance: SODIUM BICARBONATE
  35. HEPARIN [Concomitant]
     Active Substance: HEPARIN SODIUM
  36. ZOLPIDEM [Concomitant]
     Active Substance: ZOLPIDEM TARTRATE
  37. HYDROCHLOROTHIAZIDE [Concomitant]
     Active Substance: HYDROCHLOROTHIAZIDE
  38. TRULICITY [Concomitant]
     Active Substance: DULAGLUTIDE
  39. VANCOMYCIN [Concomitant]
     Active Substance: VANCOMYCIN
  40. INSULIN NOS [Concomitant]
     Active Substance: INSULIN NOS
  41. VITAMIN B1 [Concomitant]
     Active Substance: THIAMINE HYDROCHLORIDE
  42. TOPROL XL [Concomitant]
     Active Substance: METOPROLOL SUCCINATE
     Dates: start: 20201005
  43. LOSARTAN [Concomitant]
     Active Substance: LOSARTAN
  44. TORSEMIDE [Concomitant]
     Active Substance: TORSEMIDE
  45. ALDACTONE [Concomitant]
     Active Substance: SPIRONOLACTONE
  46. PANTOPRAZOLE [Concomitant]
     Active Substance: PANTOPRAZOLE
  47. THIAMINE [Concomitant]
     Active Substance: THIAMINE
  48. AMLODIPINE [Concomitant]
     Active Substance: AMLODIPINE BESYLATE
     Dates: start: 20201004
  49. TRESIBA [Concomitant]
     Active Substance: INSULIN DEGLUDEC
     Dates: start: 20200908
  50. ATORVASTATIN [Concomitant]
     Active Substance: ATORVASTATIN
     Dates: start: 20200908
  51. CLONIDINE [Concomitant]
     Active Substance: CLONIDINE
     Dates: start: 20200908
  52. METOPROLOL [Concomitant]
     Active Substance: METOPROLOL
     Dates: start: 20200908
  53. CEFACLOR [Concomitant]
     Active Substance: CEFACLOR
     Dates: start: 20200908
  54. CEPHALEXIN [Concomitant]
     Active Substance: CEPHALEXIN
     Dates: start: 20200908
  55. POTASSIUM CHLORIDE [Concomitant]
     Active Substance: POTASSIUM CHLORIDE
  56. VERAPAMIL HYDROCHLORIDE [Concomitant]
     Active Substance: VERAPAMIL HYDROCHLORIDE
  57. ALUMINIUM HYDROXIDE/ACETYLSALICYLATE CALCIUM [Concomitant]
  58. MAGNESIUM HYDROXIDE [Concomitant]
     Active Substance: MAGNESIUM HYDROXIDE
  59. BISACODYL [Concomitant]
     Active Substance: BISACODYL
  60. CYC?LOBENZAPRINE HYDROCHLORIDE [Concomitant]
  61. AMPICILLIN SODIUM/AMPICILLIN BENZATHINE [Concomitant]
  62. METOLAZONE [Concomitant]
     Active Substance: METOLAZONE
  63. SODIUM CHLORIDE [Concomitant]
     Active Substance: SODIUM CHLORIDE
  64. VITAMINS [Concomitant]
     Active Substance: VITAMINS
  65. POLYETHYLENE GLYCOL [Concomitant]
     Active Substance: POLYETHYLENE GLYCOL
  66. MALTOSE [Concomitant]
     Active Substance: MALTOSE
  67. BYDUREON [Concomitant]
     Active Substance: EXENATIDE
  68. DIFLUCAN [Concomitant]
     Active Substance: FLUCONAZOLE
  69. MULTAQ [Concomitant]
     Active Substance: DRONEDARONE
  70. PROBIOTICS NOS/NICOTINAMIDE/NICOTINIC ACID/CALCIUM PANTOTHENATE/TOCOTR [Concomitant]
  71. CHLORTHALIDONE [Concomitant]
     Active Substance: CHLORTHALIDONE
  72. LABETALOL [Concomitant]
     Active Substance: LABETALOL\LABETALOL HYDROCHLORIDE

REACTIONS (17)
  - Fournier^s gangrene [Unknown]
  - Hypertension [Unknown]
  - Hypoglycaemia [Unknown]
  - Colon cancer [Unknown]
  - Actinic keratosis [Unknown]
  - Wound infection [Unknown]
  - Gangrene [Unknown]
  - Chapped lips [Unknown]
  - Respiratory failure [Unknown]
  - Acute kidney injury [Unknown]
  - Scrotal abscess [Unknown]
  - Cardiac failure congestive [Unknown]
  - Arteriosclerosis [Unknown]
  - Perineal abscess [Unknown]
  - Necrotising fasciitis [Unknown]
  - Chronic kidney disease [Unknown]
  - Renal failure [Unknown]

NARRATIVE: CASE EVENT DATE: 20070104
